FAERS Safety Report 8820606 (Version 3)
Quarter: 2012Q4

REPORT INFORMATION
  Report Type: 
  Country: JP (occurrence: JP)
  Receive Date: 20121002
  Receipt Date: 20121127
  Transmission Date: 20130627
  Serious: Yes (Hospitalization, Other)
  Sender: FDA-Public Use
  Company Number: JP-ASTRAZENECA-2012SE75385

PATIENT
  Age: 67 Year
  Sex: Female
  Weight: 40 kg

DRUGS (16)
  1. SEROQUEL [Suspect]
     Indication: DELIRIUM
     Route: 048
     Dates: start: 20120903, end: 20120919
  2. YOKUKAN-SAN [Suspect]
     Indication: DELIRIUM
     Route: 048
     Dates: start: 20120719, end: 20120919
  3. YOKUKAN-SAN [Suspect]
     Indication: DELIRIUM
     Route: 048
     Dates: start: 20120920
  4. TAKEPRON [Concomitant]
     Indication: PROPHYLAXIS AGAINST GASTROINTESTINAL ULCER
     Dates: start: 20120413
  5. TAMBOCOR [Concomitant]
     Indication: ATRIAL FIBRILLATION
  6. FUROSEMIDE [Concomitant]
     Indication: OEDEMA
     Dates: start: 20120423
  7. ALOSENN [Concomitant]
     Dates: start: 20120712
  8. PURSENNID [Concomitant]
     Dates: start: 20120412
  9. MUCOSTA [Concomitant]
     Dates: start: 20120412
  10. LENDORMIN [Concomitant]
     Dates: start: 20120412
  11. CALONAL [Concomitant]
     Indication: POST HERPETIC NEURALGIA
     Dates: start: 20120412
  12. ROCEPHIN [Concomitant]
     Dates: start: 20120911, end: 20120913
  13. AMBISOME [Concomitant]
     Dates: start: 20120912
  14. VANCOMYCIN [Concomitant]
     Dates: start: 20120912
  15. PASIL [Concomitant]
     Dates: start: 20120913, end: 20120919
  16. ZOSYN [Concomitant]
     Dates: start: 20120919

REACTIONS (2)
  - Interstitial lung disease [Recovered/Resolved]
  - Off label use [Unknown]
